FAERS Safety Report 10439152 (Version 1)
Quarter: 2014Q3

REPORT INFORMATION
  Report Type: Spontaneous
  Country: US (occurrence: US)
  Receive Date: 20140908
  Receipt Date: 20140908
  Transmission Date: 20150326
  Serious: No
  Sender: FDA-Public Use
  Company Number: US-BRISTOL-MYERS SQUIBB COMPANY-20603494

PATIENT
  Age: 63 Year
  Sex: Female
  Weight: 80.72 kg

DRUGS (8)
  1. ZOLTEC [Concomitant]
     Active Substance: FLUCONAZOLE
  2. CLONAZEPAM. [Concomitant]
     Active Substance: CLONAZEPAM
  3. MELOXICAM. [Concomitant]
     Active Substance: MELOXICAM
  4. LISINOPRIL. [Concomitant]
     Active Substance: LISINOPRIL
  5. MIRTAZAPINE. [Concomitant]
     Active Substance: MIRTAZAPINE
  6. EFFEXOR [Concomitant]
     Active Substance: VENLAFAXINE HYDROCHLORIDE
  7. CARVEDILOL. [Concomitant]
     Active Substance: CARVEDILOL
  8. ABILIFY [Suspect]
     Active Substance: ARIPIPRAZOLE
     Indication: DEPRESSION
     Dosage: DURATION: ALMOST A YEAR.?INTERRUPTED: AROUND 3 WEEKS AGO
     Route: 048

REACTIONS (4)
  - Asthenia [Not Recovered/Not Resolved]
  - Drug ineffective [Unknown]
  - Weight decreased [Not Recovered/Not Resolved]
  - Gait disturbance [Not Recovered/Not Resolved]

NARRATIVE: CASE EVENT DATE: 2014
